FAERS Safety Report 25146359 (Version 1)
Quarter: 2025Q2

REPORT INFORMATION
  Report Type: Spontaneous
  Country: CZ (occurrence: CZ)
  Receive Date: 20250401
  Receipt Date: 20250401
  Transmission Date: 20250716
  Serious: Yes (Death, Hospitalization)
  Sender: BAYER
  Company Number: CZ-BAYER-2025A042103

PATIENT
  Sex: Male

DRUGS (1)
  1. NEXAVAR [Suspect]
     Active Substance: SORAFENIB
     Indication: Hepatocellular carcinoma
     Dates: start: 202107, end: 202108

REACTIONS (7)
  - Hepatocellular carcinoma [Fatal]
  - General physical health deterioration [None]
  - Vomiting [None]
  - Hypophagia [None]
  - Abdominal pain upper [None]
  - Diarrhoea [None]
  - Drug intolerance [None]
